FAERS Safety Report 17646731 (Version 1)
Quarter: 2020Q2

REPORT INFORMATION
  Report Type: Report from Study
  Country: US (occurrence: US)
  Receive Date: 20200408
  Receipt Date: 20200408
  Transmission Date: 20200713
  Serious: Yes (Hospitalization)
  Sender: FDA-Public Use
  Company Number: US-B.I. PHARMACEUTICALS,INC./RIDGEFIELD-2019-BI-109355

PATIENT
  Age: 86 Year
  Sex: Male

DRUGS (2)
  1. OFEV [Suspect]
     Active Substance: NINTEDANIB
     Route: 048
     Dates: start: 20200209, end: 20200229
  2. OFEV [Suspect]
     Active Substance: NINTEDANIB
     Indication: IDIOPATHIC PULMONARY FIBROSIS
     Dosage: 150 MG EVERY 12 HOURS
     Route: 048
     Dates: start: 20180615

REACTIONS (11)
  - Ankle fracture [Not Recovered/Not Resolved]
  - Myocardial infarction [Recovering/Resolving]
  - Diarrhoea [Unknown]
  - Atrial fibrillation [Not Recovered/Not Resolved]
  - Tibia fracture [Unknown]
  - Fall [Unknown]
  - Lower limb fracture [Unknown]
  - Haematemesis [Recovered/Resolved]
  - Fall [Recovered/Resolved]
  - Oesophageal ulcer [Recovered/Resolved]
  - Ulcer haemorrhage [Unknown]

NARRATIVE: CASE EVENT DATE: 201910
